FAERS Safety Report 26069924 (Version 1)
Quarter: 2025Q4

REPORT INFORMATION
  Report Type: Spontaneous
  Country: US (occurrence: US)
  Receive Date: 20251120
  Receipt Date: 20251120
  Transmission Date: 20260117
  Serious: No
  Sender: CATALYST PHARMA
  Company Number: US-CATALYST PHARMACEUTICALS-US-CATA-25-01486

PATIENT
  Sex: Male
  Weight: 49.392 kg

DRUGS (9)
  1. AGAMREE [Suspect]
     Active Substance: VAMOROLONE
     Indication: Duchenne muscular dystrophy
     Dosage: 7.2 ML DAILY
     Route: 048
     Dates: start: 20241002, end: 202508
  2. BENADRYL [Concomitant]
     Active Substance: DIPHENHYDRAMINE HYDROCHLORIDE
     Indication: Sleep disorder
     Dosage: 100 MG AT BEDTIME
     Route: 065
  3. CARVEDILOL [Concomitant]
     Active Substance: CARVEDILOL
     Indication: Cardiac failure congestive
     Dosage: 25 MG TWICE A DAY
     Route: 065
  4. CLONIDINE [Concomitant]
     Active Substance: CLONIDINE
     Indication: Autism spectrum disorder
     Dosage: 0.4 MG AT BEDTIME
     Route: 065
  5. ENALAPRIL [Concomitant]
     Active Substance: ENALAPRIL
     Indication: Cardiac failure congestive
     Dosage: 20 MG DAILY
     Route: 065
  6. EPLERENONE [Concomitant]
     Active Substance: EPLERENONE
     Indication: Cardiac failure congestive
     Dosage: 25 MG DAILY
     Route: 065
  7. GUANFACINE [Concomitant]
     Active Substance: GUANFACINE
     Indication: Autism spectrum disorder
     Dosage: 4 MG DAILY
     Route: 065
  8. MELATONIN [Concomitant]
     Active Substance: MELATONIN
     Indication: Sleep disorder
     Dosage: 10 MG AT BEDTIME
     Route: 065
  9. VITAMINS [Concomitant]
     Active Substance: VITAMINS
     Indication: Hypovitaminosis
     Dosage: ONE TABLET DAILY
     Route: 065

REACTIONS (1)
  - Urinary tract infection [Not Recovered/Not Resolved]
